FAERS Safety Report 6902895-6 (Version None)
Quarter: 2010Q3

REPORT INFORMATION
  Report Type: 
  Country: None (occurrence: None)
  Receive Date: 20100803
  Receipt Date: 20080911
  Transmission Date: 20110219
  Serious: Yes (Other)
  Sender: FDA-Public Use
  Company Number: US-PFIZER INC-2008077807

PATIENT
  Sex: Male
  Weight: 90.7 kg

DRUGS (8)
  1. LYRICA [Suspect]
     Indication: NEUROPATHY PERIPHERAL
     Dates: start: 20080702, end: 20080821
  2. SYNTHROID [Concomitant]
  3. IMDUR [Concomitant]
  4. COZAAR [Concomitant]
  5. AMIODARONE HCL [Concomitant]
  6. LIPITOR [Concomitant]
  7. ZETIA [Concomitant]
  8. DIGOXIN [Concomitant]

REACTIONS (5)
  - DRUG INTOLERANCE [None]
  - FACE OEDEMA [None]
  - OEDEMA PERIPHERAL [None]
  - RASH PRURITIC [None]
  - WEIGHT INCREASED [None]
